FAERS Safety Report 8934938 (Version 3)
Quarter: 2012Q4

REPORT INFORMATION
  Report Type: Report from Study
  Country: DE (occurrence: DE)
  Receive Date: 20121129
  Receipt Date: 20121226
  Transmission Date: 20130627
  Serious: Yes (Hospitalization)
  Sender: FDA-Public Use
  Company Number: DE-ROCHE-1156566

PATIENT
  Age: 67 Year
  Sex: Female
  Weight: 77.7 kg

DRUGS (1)
  1. TOCILIZUMAB [Suspect]
     Indication: RHEUMATOID ARTHRITIS
     Dosage: date of last dose prior to SAE 24 oct 2012
     Route: 042
     Dates: start: 20121024

REACTIONS (1)
  - Nephrolithiasis [Recovered/Resolved with Sequelae]
